FAERS Safety Report 18212012 (Version 2)
Quarter: 2020Q3

REPORT INFORMATION
  Report Type: Spontaneous
  Country: US (occurrence: US)
  Receive Date: 20200831
  Receipt Date: 20200904
  Transmission Date: 20201103
  Serious: Yes (Hospitalization, Other)
  Sender: FDA-Public Use
  Company Number: US-SA-2020SA226542

PATIENT

DRUGS (1)
  1. LIDOCAINE. [Suspect]
     Active Substance: LIDOCAINE
     Indication: TEETHING
     Dosage: 1 TSP OF 2% VISCOUS LIDOCAINE HYDROCHLORIDE
     Route: 048

REACTIONS (3)
  - Intentional product misuse [Recovered/Resolved]
  - Seizure [Recovered/Resolved]
  - Neurotoxicity [Recovered/Resolved]
